FAERS Safety Report 20131203 (Version 1)
Quarter: 2021Q4

REPORT INFORMATION
  Report Type: Spontaneous
  Country: US (occurrence: US)
  Receive Date: 20211130
  Receipt Date: 20211130
  Transmission Date: 20220303
  Serious: No
  Sender: FDA-Public Use
  Company Number: US-PFIZER INC-2019330671

PATIENT
  Age: 71 Year
  Sex: Female

DRUGS (1)
  1. PREMARIN [Suspect]
     Active Substance: ESTROGENS, CONJUGATED
     Dosage: 0.5 G (0.5 GM ON FINGER TIP LENGTH MONDAY WEDNESDAY, FRIDAY 3 X^S A WEEK)
     Route: 067

REACTIONS (2)
  - Off label use [Unknown]
  - Anxiety [Unknown]
